FAERS Safety Report 9056390 (Version 1)
Quarter: 2013Q1

REPORT INFORMATION
  Report Type: Spontaneous
  Country: US (occurrence: US)
  Receive Date: 20130204
  Receipt Date: 20130204
  Transmission Date: 20140127
  Serious: Yes (Hospitalization)
  Sender: FDA-Public Use
  Company Number: US-ASTRAZENECA-2013SE07479

PATIENT
  Age: 47 Year
  Sex: Male

DRUGS (2)
  1. ESOMEPRAZOLE [Suspect]
     Indication: BURKITT^S LYMPHOMA
     Route: 048
  2. METHOTREXATE [Interacting]
     Indication: BURKITT^S LYMPHOMA

REACTIONS (2)
  - Drug interaction [Unknown]
  - Drug clearance decreased [Recovered/Resolved]
